FAERS Safety Report 23849604 (Version 1)
Quarter: 2024Q2

REPORT INFORMATION
  Report Type: Spontaneous
  Country: US (occurrence: None)
  Receive Date: 20240511
  Receipt Date: 20240511
  Transmission Date: 20240716
  Serious: Yes (Life-Threatening)
  Sender: FDA-Public Use
  Company Number: None

PATIENT
  Age: 32 Year
  Sex: Female

DRUGS (1)
  1. TAXOL [Suspect]
     Active Substance: PACLITAXEL
     Indication: Chemotherapy
     Dates: start: 20240509

REACTIONS (2)
  - Infusion related reaction [None]
  - Anaphylactic shock [None]

NARRATIVE: CASE EVENT DATE: 20240509
